FAERS Safety Report 6271723-7 (Version None)
Quarter: 2009Q3

REPORT INFORMATION
  Report Type: 
  Country: None (occurrence: None)
  Receive Date: 20090717
  Receipt Date: 20090624
  Transmission Date: 20100115
  Serious: No
  Sender: FDA-Public Use
  Company Number: US-BAYER-200911985BCC

PATIENT
  Age: 71 Year
  Sex: Female
  Weight: 45 kg

DRUGS (5)
  1. ALEVE [Suspect]
     Indication: BACK PAIN
     Dosage: TOTAL DAILY DOSE: 220 MG  UNIT DOSE: 220 MG
     Route: 048
     Dates: start: 20090617, end: 20090618
  2. UNKNOWN THYROID MEDICATION [Concomitant]
     Route: 065
  3. ASPIRIN [Concomitant]
     Route: 048
  4. TRAMADOL HCL [Concomitant]
     Indication: PAIN
     Route: 065
  5. ASPIRIN [Concomitant]
     Route: 048

REACTIONS (2)
  - DIZZINESS [None]
  - ERYTHEMA [None]
